FAERS Safety Report 6172690-7 (Version None)
Quarter: 2009Q2

REPORT INFORMATION
  Report Type: 
  Country: None (occurrence: None)
  Receive Date: 20090430
  Receipt Date: 20090422
  Transmission Date: 20091009
  Serious: Yes (Hospitalization)
  Sender: FDA-Public Use
  Company Number: FR-JNJFOC-20090405426

PATIENT
  Sex: Female
  Weight: 65 kg

DRUGS (2)
  1. EPITOMAX [Suspect]
     Indication: FIBROMYALGIA
     Route: 048
  2. TETRAZEPAM [Concomitant]
     Route: 048

REACTIONS (9)
  - ABDOMINAL PAIN [None]
  - AMNESIA [None]
  - ASTHENIA [None]
  - DIARRHOEA [None]
  - MALNUTRITION [None]
  - OFF LABEL USE [None]
  - PARAESTHESIA [None]
  - VOMITING [None]
  - WEIGHT DECREASED [None]
